FAERS Safety Report 25430622 (Version 1)
Quarter: 2025Q2

REPORT INFORMATION
  Report Type: Spontaneous
  Country: IT (occurrence: IT)
  Receive Date: 20250612
  Receipt Date: 20250612
  Transmission Date: 20250716
  Serious: Yes (Life-Threatening, Other)
  Sender: PFIZER
  Company Number: IT-PFIZER INC-PV202500070155

PATIENT
  Age: 58 Year
  Sex: Male

DRUGS (12)
  1. BORTEZOMIB [Suspect]
     Active Substance: BORTEZOMIB
     Indication: Chronic lymphocytic leukaemia
  2. BORTEZOMIB [Suspect]
     Active Substance: BORTEZOMIB
     Indication: Plasma cell myeloma
  3. BORTEZOMIB [Suspect]
     Active Substance: BORTEZOMIB
  4. VENETOCLAX [Concomitant]
     Active Substance: VENETOCLAX
     Indication: Chronic lymphocytic leukaemia
     Dosage: 20 MG, DAILY CYCLE 1, 28-DAY CYCLE
  5. VENETOCLAX [Concomitant]
     Active Substance: VENETOCLAX
     Indication: Plasma cell myeloma
     Dosage: 50 MG, DAILY CYCLE 1, 28-DAY CYCLE
  6. VENETOCLAX [Concomitant]
     Active Substance: VENETOCLAX
     Dosage: 100 MG, DAILY CYCLE 1, 28-DAY CYCLE
  7. VENETOCLAX [Concomitant]
     Active Substance: VENETOCLAX
     Dosage: 200 MG, DAILY CYCLE 1, 28-DAY CYCLE
  8. VENETOCLAX [Concomitant]
     Active Substance: VENETOCLAX
     Dosage: 400 MG, DAILY CYCLES 2-8, 21-DAY CYCLES
  9. VENETOCLAX [Concomitant]
     Active Substance: VENETOCLAX
     Dosage: 400 MG, DAILY CYCLES MORE THAN AND EQUAL TO  9, 35-DAY CYCLES
  10. DEXAMETHASONE [Concomitant]
     Active Substance: DEXAMETHASONE
     Indication: Chronic lymphocytic leukaemia
  11. DEXAMETHASONE [Concomitant]
     Active Substance: DEXAMETHASONE
     Indication: Plasma cell myeloma
  12. DEXAMETHASONE [Concomitant]
     Active Substance: DEXAMETHASONE

REACTIONS (1)
  - Neuropathy peripheral [Unknown]
